FAERS Safety Report 14560137 (Version 1)
Quarter: 2018Q1

REPORT INFORMATION
  Report Type: Spontaneous
  Country: US (occurrence: US)
  Receive Date: 20180222
  Receipt Date: 20180222
  Transmission Date: 20180509
  Serious: No
  Sender: FDA-Public Use
  Company Number: US-ELI_LILLY_AND_COMPANY-US201801012113

PATIENT
  Age: 80 Year
  Sex: Male

DRUGS (3)
  1. HUMALOG [Suspect]
     Active Substance: INSULIN LISPRO
     Indication: TYPE 2 DIABETES MELLITUS
     Dosage: 4 U, PRN BEFORE EACH MEAL
     Route: 058
     Dates: start: 201710
  2. HUMALOG [Suspect]
     Active Substance: INSULIN LISPRO
     Dosage: 4 U, PRN BEFORE EACH MEAL
     Route: 058
     Dates: start: 201710
  3. LANTUS [Concomitant]
     Active Substance: INSULIN GLARGINE
     Indication: TYPE 2 DIABETES MELLITUS
     Dosage: 12 U, DAILY
     Route: 065
     Dates: start: 2008

REACTIONS (5)
  - Influenza [Recovering/Resolving]
  - Blood immunoglobulin M increased [Not Recovered/Not Resolved]
  - Stress [Unknown]
  - Blood creatinine increased [Not Recovered/Not Resolved]
  - Blood glucose increased [Not Recovered/Not Resolved]

NARRATIVE: CASE EVENT DATE: 20180111
